FAERS Safety Report 9467167 (Version 2)
Quarter: 2013Q3

REPORT INFORMATION
  Report Type: Spontaneous
  Country: AU (occurrence: AU)
  Receive Date: 20130820
  Receipt Date: 20130820
  Transmission Date: 20140515
  Serious: Yes (Hospitalization)
  Sender: FDA-Public Use
  Company Number: AU-MERCK-1307AUS014617

PATIENT
  Age: 19 Year
  Sex: Male

DRUGS (2)
  1. SAPHRIS [Suspect]
     Indication: SCHIZOPHRENIA
     Dosage: 5 MG, HS
     Route: 048
  2. SAPHRIS [Suspect]
     Dosage: 5 MG, BID
     Route: 048

REACTIONS (3)
  - Condition aggravated [Unknown]
  - Torticollis [Recovered/Resolved]
  - Incorrect route of drug administration [Unknown]
